FAERS Safety Report 5948298-2 (Version None)
Quarter: 2008Q4

REPORT INFORMATION
  Report Type: 
  Country: None (occurrence: None)
  Receive Date: 20081110
  Receipt Date: 20081110
  Transmission Date: 20090506
  Serious: Yes (Life-Threatening)
  Sender: FDA-Public Use
  Company Number: None

PATIENT
  Age: 75 Year
  Sex: Male
  Weight: 72.5755 kg

DRUGS (2)
  1. PLAVIX [Suspect]
     Indication: PROPHYLAXIS
     Dosage: ONCE A DAY
     Dates: start: 20080611, end: 20080628
  2. PLAVIX [Suspect]
     Indication: STENT OCCLUSION
     Dosage: ONCE A DAY
     Dates: start: 20080611, end: 20080628

REACTIONS (4)
  - DISORIENTATION [None]
  - FEELING ABNORMAL [None]
  - FEELING HOT [None]
  - HOT FLUSH [None]
